FAERS Safety Report 26215244 (Version 2)
Quarter: 2025Q4

REPORT INFORMATION
  Report Type: Spontaneous
  Country: JP (occurrence: JP)
  Receive Date: 20251230
  Receipt Date: 20251230
  Transmission Date: 20260118
  Serious: Yes (Other)
  Sender: MERCK SHARP & DOHME LLC
  Company Number: JP-009507513-2364518

PATIENT
  Age: 35 Year
  Sex: Female

DRUGS (6)
  1. SUGAMMADEX SODIUM [Suspect]
     Active Substance: SUGAMMADEX SODIUM
     Indication: Shock haemorrhagic
     Dosage: UNKNOWN
     Route: 065
  2. FENTANYL CITRATE [Concomitant]
     Active Substance: FENTANYL CITRATE
     Indication: Anaesthesia procedure
     Dosage: UNKNOWN
     Route: 065
  3. PHENYLEPHRINE HYDROCHLORIDE [Concomitant]
     Active Substance: PHENYLEPHRINE HYDROCHLORIDE
     Indication: Anaesthesia procedure
     Dosage: UNKNOWN
     Route: 065
  4. REMIFENTANIL HYDROCHLORIDE [Concomitant]
     Active Substance: REMIFENTANIL HYDROCHLORIDE
     Indication: Anaesthesia procedure
     Dosage: UNKNOWN
     Route: 065
  5. PROPOFOL [Concomitant]
     Active Substance: PROPOFOL
     Indication: Anaesthesia procedure
     Dosage: UNKNOWN
     Route: 065
  6. ROCURONIUM BROMIDE [Concomitant]
     Active Substance: ROCURONIUM BROMIDE
     Indication: Anaesthesia procedure
     Dosage: UNKNOWN
     Route: 065

REACTIONS (3)
  - Haemorrhage [Recovering/Resolving]
  - Maternal exposure during pregnancy [Unknown]
  - Live birth [Unknown]
